FAERS Safety Report 22858043 (Version 2)
Quarter: 2023Q4

REPORT INFORMATION
  Report Type: Report from Study
  Country: CA (occurrence: CA)
  Receive Date: 20230824
  Receipt Date: 20231212
  Transmission Date: 20240109
  Serious: Yes (Hospitalization, Other)
  Sender: FDA-Public Use
  Company Number: CA-BoehringerIngelheim-2023-BI-256255

PATIENT
  Age: 64 Year
  Sex: Female

DRUGS (2)
  1. JARDIANCE [Suspect]
     Active Substance: EMPAGLIFLOZIN
     Indication: Diabetes mellitus
  2. TRESIBA [Suspect]
     Active Substance: INSULIN DEGLUDEC
     Indication: Diabetes mellitus
     Route: 058

REACTIONS (2)
  - Pancreatitis [Recovering/Resolving]
  - Hypoglycaemia [Unknown]

NARRATIVE: CASE EVENT DATE: 20230612
